FAERS Safety Report 8132064-6 (Version None)
Quarter: 2012Q1

REPORT INFORMATION
  Report Type: 
  Country: None (occurrence: None)
  Receive Date: 20120213
  Receipt Date: 20120201
  Transmission Date: 20120608
  Serious: Yes (Other)
  Sender: FDA-Public Use
  Company Number: GB-AMGEN-KDC164223

PATIENT
  Age: 68 Year
  Sex: Female
  Weight: 57.99 kg

DRUGS (9)
  1. CO-DYDRAMOL [Concomitant]
     Dosage: UNK
     Route: 048
  2. AMITRIPTYLINE HCL [Concomitant]
     Dosage: UNK UNK, UNK
  3. REMICADE [Suspect]
     Dosage: 3 MG/KG, WEEKLY
     Route: 051
     Dates: start: 20020513, end: 20040305
  4. ZOPICLONE [Concomitant]
     Dosage: UNK
     Route: 048
  5. ENBREL [Suspect]
     Indication: RHEUMATOID ARTHRITIS
     Dosage: 25 MG, 2 TIMES/WK
     Route: 058
     Dates: start: 20040712, end: 20041112
  6. LISINOPRIL [Concomitant]
     Dosage: UNK
     Route: 048
  7. FOSAMAX [Concomitant]
     Dosage: 70 MG, WEEKLY
     Route: 048
     Dates: start: 20020101
  8. PREDNISOLONE [Suspect]
     Dosage: 3 MG, 1X/DAY
     Route: 048
     Dates: start: 19960101
  9. PLAQUENIL [Concomitant]
     Dosage: UNK

REACTIONS (2)
  - BASAL CELL CARCINOMA [None]
  - ECZEMA [None]
